FAERS Safety Report 8023905-1 (Version None)
Quarter: 2012Q1

REPORT INFORMATION
  Report Type: 
  Country: None (occurrence: None)
  Receive Date: 20120105
  Receipt Date: 20111222
  Transmission Date: 20120608
  Serious: Yes (Hospitalization)
  Sender: FDA-Public Use
  Company Number: JP-UCBSA-048465

PATIENT
  Age: 70 Year
  Sex: Female

DRUGS (10)
  1. METHOTREXATE [Concomitant]
     Dosage: TOTAL DAILY DOSE : 12 MG (1 WEEK)
     Dates: start: 20110622
  2. FOLIC ACID [Concomitant]
     Dosage: TOTAL DAILY DOSE : 15 MG
     Dates: start: 20110305
  3. ASCORBIC ACID_CALCIUM PANTOTHENATE [Concomitant]
     Dosage: TOTAL DAILY DOSE : 1 G
     Dates: start: 20101117
  4. FAMOTIDINE [Concomitant]
     Dosage: TOTAL DAILY DOSE : 10 MG
     Dates: start: 20100916
  5. CERTOLIZUMAB PEGOL [Suspect]
     Indication: RHEUMATOID ARTHRITIS
     Route: 058
     Dates: start: 20110113
  6. LOXOPROFEN SODIUM HYDRATE [Concomitant]
     Dosage: TOTAL DAILY DOSE : 120 MG
     Dates: start: 20111215
  7. CERTOLIZUMAB PEGOL [Suspect]
     Dosage: PREVIOUS STUDY : 275-08-001
     Route: 058
     Dates: start: 20091216, end: 20101216
  8. PREDNISOLONE [Concomitant]
     Dosage: TOTAL DAILY DOSE : 1 MG
     Dates: start: 20111021
  9. CALCITRIOL [Concomitant]
     Dosage: TOTAL DAILY DOSE : 0.25 MCG
     Dates: start: 20090518
  10. KETOPROFEN [Concomitant]
     Dates: start: 20080909

REACTIONS (1)
  - PNEUMONIA [None]
